FAERS Safety Report 10577194 (Version 1)
Quarter: 2014Q4

REPORT INFORMATION
  Report Type: Spontaneous
  Country: US (occurrence: US)
  Receive Date: 20141111
  Receipt Date: 20141111
  Transmission Date: 20150529
  Serious: Yes (Death)
  Sender: FDA-Public Use
  Company Number: US-INCYTE CORPORATION-2014IN003362

PATIENT
  Sex: Female

DRUGS (20)
  1. PROCHLORPERAZINE. [Concomitant]
     Active Substance: PROCHLORPERAZINE
  2. HYDROCODONE [Concomitant]
     Active Substance: HYDROCODONE
  3. ATOVAQUONE. [Concomitant]
     Active Substance: ATOVAQUONE
  4. TACROLIMUS. [Concomitant]
     Active Substance: TACROLIMUS
  5. NOVOLOG [Concomitant]
     Active Substance: INSULIN ASPART
  6. BUDESONIDE. [Concomitant]
     Active Substance: BUDESONIDE
  7. OXYCODONE [Concomitant]
     Active Substance: OXYCODONE
  8. MYCOPHENOLATE [Concomitant]
     Active Substance: MYCOPHENOLIC ACID
  9. TRIAMCINOLONE [Concomitant]
     Active Substance: TRIAMCINOLONE
  10. LORAZEPAM. [Concomitant]
     Active Substance: LORAZEPAM
  11. VORICONAZOLE. [Concomitant]
     Active Substance: VORICONAZOLE
  12. NOXAFIL [Concomitant]
     Active Substance: POSACONAZOLE
  13. URSODIOL. [Concomitant]
     Active Substance: URSODIOL
  14. GELCLAIR                           /01702001/ [Concomitant]
  15. JAKAFI [Suspect]
     Active Substance: RUXOLITINIB
     Indication: MYELOFIBROSIS
     Dosage: 10 MG, TID
     Route: 048
     Dates: start: 20131210
  16. NYSTATIN. [Concomitant]
     Active Substance: NYSTATIN
  17. PANTOPRAZOLE [Concomitant]
     Active Substance: PANTOPRAZOLE SODIUM
  18. VALCYTE [Concomitant]
     Active Substance: VALGANCICLOVIR HYDROCHLORIDE
  19. PREDNISONE. [Concomitant]
     Active Substance: PREDNISONE
  20. ESCITALOPRAM [Concomitant]
     Active Substance: ESCITALOPRAM OXALATE

REACTIONS (1)
  - Death [Fatal]
